FAERS Safety Report 19668071 (Version 1)
Quarter: 2021Q3

REPORT INFORMATION
  Report Type: Spontaneous
  Country: US (occurrence: US)
  Receive Date: 20210806
  Receipt Date: 20210806
  Transmission Date: 20211014
  Serious: No
  Sender: FDA-Public Use
  Company Number: US-BAUSCH-BL-2021-025129

PATIENT
  Sex: Female

DRUGS (1)
  1. DILTIAZEM HCL EXTENDED?RELEASE TABLETS [Suspect]
     Active Substance: DILTIAZEM HYDROCHLORIDE
     Indication: POSTURAL ORTHOSTATIC TACHYCARDIA SYNDROME
     Dosage: 2 TABLETS
     Route: 048

REACTIONS (3)
  - Flushing [Unknown]
  - Nausea [Unknown]
  - Hypotension [Unknown]
